FAERS Safety Report 6157484-0 (Version None)
Quarter: 2009Q2

REPORT INFORMATION
  Report Type: 
  Country: None (occurrence: None)
  Receive Date: 20090416
  Receipt Date: 20090416
  Transmission Date: 20091009
  Serious: Yes (Hospitalization, Other)
  Sender: FDA-Public Use
  Company Number: PHHO2005FR00440

PATIENT
  Sex: Female

DRUGS (1)
  1. CGS 20267 T30748+ [Suspect]
     Dosage: 2.5 MG, QD
     Route: 048
     Dates: start: 20040615

REACTIONS (4)
  - DEEP VEIN THROMBOSIS [None]
  - FALL [None]
  - FOOT FRACTURE [None]
  - OSTEOSYNTHESIS [None]
